FAERS Safety Report 16138361 (Version 3)
Quarter: 2023Q1

REPORT INFORMATION
  Report Type: Other
  Country: CN (occurrence: None)
  Receive Date: 20190401
  Receipt Date: 20230124
  Transmission Date: 20230417
  Serious: Yes (Other)
  Sender: FDA-Public Use
  Company Number: CN-ROCHE-2292717

PATIENT
  Age: 15 Year
  Sex: Male
  Weight: 47 kg

DRUGS (16)
  1. CELLCEPT [Suspect]
     Active Substance: MYCOPHENOLATE MOFETIL
     Indication: Prophylaxis against graft versus host disease
     Route: 065
     Dates: start: 2017, end: 2017
  2. GANCICLOVIR [Suspect]
     Active Substance: GANCICLOVIR
     Indication: Cytomegalovirus viraemia
     Dosage: 2 WEEK
     Route: 042
     Dates: start: 2017
  3. GANCICLOVIR [Suspect]
     Active Substance: GANCICLOVIR
     Indication: Cytomegalovirus chorioretinitis
     Dosage: 3 MG/0 .1 ML TWICE WEEKLY FOR 2 WEEK
     Route: 050
  4. RITUXIMAB [Suspect]
     Active Substance: RITUXIMAB
     Indication: Aplastic anaemia
     Dosage: 100
     Route: 042
     Dates: start: 20170621, end: 20171115
  5. CYCLOSPORINE [Concomitant]
     Active Substance: CYCLOSPORINE
     Dates: start: 2016
  6. CYCLOSPORINE [Concomitant]
     Active Substance: CYCLOSPORINE
     Dates: start: 2017
  7. FLUOROURACIL [Concomitant]
     Active Substance: FLUOROURACIL
     Dates: start: 2017
  8. CYCLOPHOSPHAMIDE [Concomitant]
     Active Substance: CYCLOPHOSPHAMIDE
     Dates: start: 2017
  9. METHOTREXATE [Concomitant]
     Active Substance: METHOTREXATE
     Dates: start: 2017
  10. FOSCARNET SODIUM [Concomitant]
     Active Substance: FOSCARNET SODIUM
     Indication: Cytomegalovirus viraemia
     Dosage: 2 WEEKS
     Dates: start: 2017
  11. FOSCARNET SODIUM [Concomitant]
     Active Substance: FOSCARNET SODIUM
     Dates: start: 2017, end: 2017
  12. VALACYCLOVIR HYDROCHLORIDE [Concomitant]
     Active Substance: VALACYCLOVIR HYDROCHLORIDE
     Dates: start: 2017
  13. TEICOPLANIN [Concomitant]
     Active Substance: TEICOPLANIN
     Dates: start: 2017
  14. CEFTAZIDIME [Concomitant]
     Active Substance: CEFTAZIDIME
     Dates: start: 2017
  15. THYMOCYTE IMMUNE GLOBULIN NOS [Concomitant]
     Active Substance: THYMOCYTE IMMUNE GLOBULIN NOS
     Dates: start: 2017
  16. HUMAN IMMUNOGLOBULIN G [Concomitant]
     Active Substance: HUMAN IMMUNOGLOBULIN G
     Dates: start: 2017

REACTIONS (6)
  - Post transplant lymphoproliferative disorder [Unknown]
  - Cytomegalovirus chorioretinitis [Recovering/Resolving]
  - Pneumonia cytomegaloviral [Recovering/Resolving]
  - Drug resistance [Unknown]
  - Drug ineffective [Unknown]
  - Off label use [Unknown]

NARRATIVE: CASE EVENT DATE: 20170101
